FAERS Safety Report 4293635-0 (Version None)
Quarter: 2004Q1

REPORT INFORMATION
  Report Type: 
  Country: None (occurrence: None)
  Receive Date: 20040210
  Receipt Date: 20040128
  Transmission Date: 20041129
  Serious: Yes (Other)
  Sender: FDA-Public Use
  Company Number: 2004005712

PATIENT
  Age: 90 Year
  Sex: Female

DRUGS (5)
  1. PRODIF (FOSFLUCONAZOLE) [Suspect]
     Indication: FUNGAEMIA
     Dosage: 100 MG (DAILY), INTRAVENOUS
     Route: 042
     Dates: start: 20040118, end: 20040119
  2. DIFLUCAN [Suspect]
     Indication: FUNGAEMIA
     Dosage: 200 MG (DAILY), INTRAVENOUS
     Route: 042
     Dates: start: 20040109, end: 20040117
  3. INSULIN [Concomitant]
  4. ASCORBIC ACID [Concomitant]
  5. COMBINATIONS OF VITAMINS [Concomitant]

REACTIONS (1)
  - EPILEPSY [None]
